FAERS Safety Report 8067188-5 (Version None)
Quarter: 2012Q1

REPORT INFORMATION
  Report Type: 
  Country: None (occurrence: None)
  Receive Date: 20120124
  Receipt Date: 20110517
  Transmission Date: 20120608
  Serious: Yes (Hospitalization)
  Sender: FDA-Public Use
  Company Number: US-GLAXOSMITHKLINE-A0928856A

PATIENT
  Age: 40 Year
  Sex: Female

DRUGS (3)
  1. AVANDIA [Suspect]
     Indication: DIABETES MELLITUS
     Route: 048
     Dates: start: 20090129, end: 20090616
  2. AVANDARYL [Suspect]
     Indication: DIABETES MELLITUS
     Route: 048
     Dates: start: 20070507, end: 20070620
  3. AVANDIA [Suspect]
     Route: 048
     Dates: start: 20070507, end: 20100616

REACTIONS (1)
  - CEREBROVASCULAR ACCIDENT [None]
